FAERS Safety Report 9520443 (Version 1)
Quarter: 2013Q3

REPORT INFORMATION
  Report Type: Report from Study
  Country: US (occurrence: US)
  Receive Date: 20130912
  Receipt Date: 20130912
  Transmission Date: 20140515
  Serious: Yes (Other)
  Sender: FDA-Public Use
  Company Number: US-ROCHE-1274424

PATIENT
  Sex: Female

DRUGS (4)
  1. ACTEMRA [Suspect]
     Indication: RHEUMATOID ARTHRITIS
     Route: 042
  2. BENADRYL (UNITED STATES) [Concomitant]
     Route: 042
  3. TYLENOL [Concomitant]
     Route: 048
  4. GUAIFENESIN [Concomitant]
     Route: 048

REACTIONS (4)
  - Pruritus [Unknown]
  - Throat irritation [Unknown]
  - Arthralgia [Unknown]
  - Musculoskeletal pain [Unknown]
